FAERS Safety Report 5088140-8 (Version None)
Quarter: 2006Q3

REPORT INFORMATION
  Report Type: 
  Country: None (occurrence: None)
  Receive Date: 20060821
  Receipt Date: 20060807
  Transmission Date: 20061208
  Serious: Yes (Disabling)
  Sender: FDA-Public Use
  Company Number: HQWYE166904MAY06

PATIENT
  Age: 46 Year
  Sex: Female
  Weight: 61.29 kg

DRUGS (6)
  1. EFFEXOR [Suspect]
     Indication: DEPRESSION
     Dosage: ^ REDUCED THE DOSE DOWN TO ABOUT 10MG BY CUTTING THE TABLETS IN HALF THEN QUARTERS^, ORAL; SEE IMAGE
     Route: 048
     Dates: start: 20060401, end: 20060401
  2. EFFEXOR [Suspect]
     Indication: DEPRESSION
     Dosage: ^ REDUCED THE DOSE DOWN TO ABOUT 10MG BY CUTTING THE TABLETS IN HALF THEN QUARTERS^, ORAL; SEE IMAGE
     Route: 048
     Dates: start: 20060401, end: 20060427
  3. EFFEXOR [Suspect]
     Indication: DEPRESSION
     Dosage: ^ REDUCED THE DOSE DOWN TO ABOUT 10MG BY CUTTING THE TABLETS IN HALF THEN QUARTERS^, ORAL; SEE IMAGE
     Route: 048
     Dates: start: 19950101
  4. EFFEXOR XR [Suspect]
     Indication: DEPRESSION
     Dosage: SEE IMAGE
     Route: 048
     Dates: start: 20020101, end: 20060101
  5. EFFEXOR XR [Suspect]
     Indication: DEPRESSION
     Dosage: SEE IMAGE
     Route: 048
     Dates: start: 20060101, end: 20060401
  6. EFFEXOR XR [Suspect]
     Indication: DEPRESSION
     Dosage: SEE IMAGE
     Route: 048
     Dates: start: 20060101, end: 20060427

REACTIONS (17)
  - ASTHENIA [None]
  - BRUXISM [None]
  - CHILLS [None]
  - DECREASED ACTIVITY [None]
  - DEPRESSION [None]
  - DIARRHOEA [None]
  - DRUG WITHDRAWAL SYNDROME [None]
  - IMPAIRED WORK ABILITY [None]
  - INFLUENZA LIKE ILLNESS [None]
  - MUSCLE SPASMS [None]
  - NIGHT SWEATS [None]
  - NIGHTMARE [None]
  - TINNITUS [None]
  - UNEVALUABLE EVENT [None]
  - UTERINE HAEMORRHAGE [None]
  - VAGINAL HAEMORRHAGE [None]
  - VISION BLURRED [None]
